FAERS Safety Report 19845853 (Version 1)
Quarter: 2021Q3

REPORT INFORMATION
  Report Type: Spontaneous
  Country: NL (occurrence: NL)
  Receive Date: 20210917
  Receipt Date: 20210917
  Transmission Date: 20211014
  Serious: Yes (Other)
  Sender: FDA-Public Use
  Company Number: NL-TEVA-2021-NL-1952006

PATIENT
  Sex: Female
  Weight: 40 kg

DRUGS (1)
  1. HYDROCORTISON?ACETAAT CREME 10MG/G / BRAND NAME NOT SPECIFIED [Suspect]
     Active Substance: HYDROCORTISONE ACETATE
     Indication: RASH
     Dosage: 2 DOSAGE FORMS DAILY; 10 MG/G,THERAPY START DATE: ASKU,
     Dates: end: 20210810

REACTIONS (3)
  - Vomiting [Recovered/Resolved]
  - Syncope [Recovered/Resolved]
  - Eye disorder [Recovered/Resolved]
